FAERS Safety Report 21070657 (Version 1)
Quarter: 2022Q3

REPORT INFORMATION
  Report Type: Spontaneous
  Country: US (occurrence: None)
  Receive Date: 20220712
  Receipt Date: 20220712
  Transmission Date: 20221027
  Serious: Yes (Life-Threatening)
  Sender: FDA-Public Use
  Company Number: None

PATIENT
  Age: 34 Year
  Sex: Female
  Weight: 50.4 kg

DRUGS (2)
  1. PAXLOVID [Suspect]
     Active Substance: NIRMATRELVIR\RITONAVIR
     Indication: COVID-19
     Dosage: FREQUENCY : TWICE A DAY;?
     Route: 048
     Dates: start: 20220629, end: 20220702
  2. METHYLPREDNISOLONE [Suspect]
     Active Substance: METHYLPREDNISOLONE
     Indication: COVID-19
     Dosage: OTHER FREQUENCY : VARIED BY DAY;?
     Route: 048
     Dates: start: 20220630, end: 20220704

REACTIONS (14)
  - Dysgeusia [None]
  - Insomnia [None]
  - Abdominal discomfort [None]
  - Nausea [None]
  - Dizziness [None]
  - Paraesthesia [None]
  - Tinnitus [None]
  - Headache [None]
  - Confusional state [None]
  - Gastrointestinal sounds abnormal [None]
  - Pruritus [None]
  - Headache [None]
  - Tinnitus [None]
  - Paranasal sinus discomfort [None]
